FAERS Safety Report 24301591 (Version 1)
Quarter: 2024Q3

REPORT INFORMATION
  Report Type: Other
  Country: FR (occurrence: FR)
  Receive Date: 20240910
  Receipt Date: 20240910
  Transmission Date: 20241017
  Serious: Yes (Hospitalization)
  Sender: ZYDUS PHARM
  Company Number: None

PATIENT

DRUGS (3)
  1. VALSARTAN [Suspect]
     Active Substance: VALSARTAN
     Indication: Hypertension
     Dosage: 40 MILLIGRAM, QD
     Route: 048
  2. KARDEGIC [Suspect]
     Active Substance: ASPIRIN DL-LYSINE
     Indication: Disease risk factor
     Dosage: 75 MILLIGRAM, QD
     Route: 048
     Dates: end: 20240808
  3. REPATHA [Suspect]
     Active Substance: EVOLOCUMAB
     Indication: Type IIa hyperlipidaemia
     Dosage: 1 DOSAGE FORM, 14 DAYS
     Route: 058
     Dates: start: 2017, end: 20240803

REACTIONS (2)
  - Haemorrhagic diathesis [Not Recovered/Not Resolved]
  - Platelet aggregation abnormal [Not Recovered/Not Resolved]

NARRATIVE: CASE EVENT DATE: 20240822
